FAERS Safety Report 5703308-2 (Version None)
Quarter: 2008Q2

REPORT INFORMATION
  Report Type: 
  Country: None (occurrence: None)
  Receive Date: 20080411
  Receipt Date: 20080331
  Transmission Date: 20081010
  Serious: Yes (Hospitalization, Other)
  Sender: FDA-Public Use
  Company Number: US-PFIZER INC-2008019755

PATIENT
  Age: 70 Year
  Sex: Male
  Weight: 88.5 kg

DRUGS (10)
  1. LYRICA [Suspect]
     Route: 048
     Dates: start: 20070711, end: 20070726
  2. ASPIRIN [Concomitant]
     Route: 048
  3. VITAMIN B-12 [Concomitant]
     Route: 030
  4. VITAMIN B6 [Concomitant]
     Route: 048
  5. LIPITOR [Concomitant]
     Route: 048
  6. NITROGLYCERIN [Concomitant]
     Route: 060
  7. PROTONIX [Concomitant]
     Route: 048
  8. REGLAN [Concomitant]
     Route: 048
  9. UROCIT-K [Concomitant]
     Route: 048
  10. ATENOLOL [Concomitant]

REACTIONS (2)
  - ANAEMIA HAEMOLYTIC AUTOIMMUNE [None]
  - ANAEMIA MACROCYTIC [None]
